FAERS Safety Report 7288118-X (Version None)
Quarter: 2011Q1

REPORT INFORMATION
  Report Type: 
  Country: None (occurrence: None)
  Receive Date: 20110211
  Receipt Date: 20110203
  Transmission Date: 20110831
  Serious: Yes (Other)
  Sender: FDA-Public Use
  Company Number: US-BAYER-2011-013276

PATIENT
  Sex: Male
  Weight: 65 kg

DRUGS (1)
  1. ALEVE (CAPLET) [Suspect]
     Indication: BACK PAIN
     Dosage: 220 MG, QD
     Route: 048
     Dates: start: 20110202

REACTIONS (1)
  - BLOOD URINE PRESENT [None]
